FAERS Safety Report 12472367 (Version 1)
Quarter: 2016Q2

REPORT INFORMATION
  Report Type: Spontaneous
  Country: US (occurrence: US)
  Receive Date: 20160616
  Receipt Date: 20160616
  Transmission Date: 20160815
  Serious: No
  Sender: FDA-Public Use
  Company Number: US-BEH-2016070196

PATIENT
  Age: 68 Year
  Sex: Female

DRUGS (1)
  1. HIZENTRA [Suspect]
     Active Substance: HUMAN IMMUNOGLOBULIN G
     Indication: PRIMARY IMMUNODEFICIENCY SYNDROME
     Dosage: 9 G, QW
     Route: 058
     Dates: start: 201506

REACTIONS (4)
  - Skin disorder [Unknown]
  - Skin atrophy [Unknown]
  - Skin wrinkling [Unknown]
  - Solar lentigo [Unknown]
